FAERS Safety Report 19467104 (Version 1)
Quarter: 2021Q2

REPORT INFORMATION
  Report Type: Spontaneous
  Country: US (occurrence: US)
  Receive Date: 20210628
  Receipt Date: 20210628
  Transmission Date: 20210717
  Serious: No
  Sender: FDA-Public Use
  Company Number: US-TEVA-2021-US-1924166

PATIENT
  Sex: Female

DRUGS (1)
  1. MUPIROCIN. [Suspect]
     Active Substance: MUPIROCIN
     Route: 045

REACTIONS (4)
  - Off label use [Not Recovered/Not Resolved]
  - Product administered at inappropriate site [Recovered/Resolved]
  - Drug ineffective [Recovered/Resolved]
  - Xerosis [Recovered/Resolved]
